FAERS Safety Report 4703497-2 (Version None)
Quarter: 2005Q2

REPORT INFORMATION
  Report Type: 
  Country: None (occurrence: None)
  Receive Date: 20050608
  Receipt Date: 20050608
  Transmission Date: 20051028
  Serious: Yes (Other)
  Sender: FDA-Public Use
  Company Number: None

PATIENT
  Age: 41 Year
  Sex: Male
  Weight: 99.7913 kg

DRUGS (1)
  1. CLOZAPINE [Suspect]
     Dosage: 100MG 1 TAB AM + 3 TABS HS
     Dates: start: 20040901

REACTIONS (7)
  - ABNORMAL BEHAVIOUR [None]
  - ANGER [None]
  - HALLUCINATION, AUDITORY [None]
  - IRRITABILITY [None]
  - JOB DISSATISFACTION [None]
  - THERAPEUTIC RESPONSE UNEXPECTED WITH DRUG SUBSTITUTION [None]
  - THINKING ABNORMAL [None]
